FAERS Safety Report 5529428-3 (Version None)
Quarter: 2007Q4

REPORT INFORMATION
  Report Type: 
  Country: None (occurrence: None)
  Receive Date: 20071129
  Receipt Date: 20071119
  Transmission Date: 20080405
  Serious: Yes (Hospitalization)
  Sender: FDA-Public Use
  Company Number: JP-ROCHE-530197

PATIENT
  Age: 57 Year
  Sex: Female
  Weight: 45 kg

DRUGS (7)
  1. KYTRIL [Suspect]
     Route: 065
     Dates: start: 20070530, end: 20070801
  2. HERCEPTIN [Suspect]
     Indication: BREAST CANCER
     Dosage: TWO DOSES WERE INTERRUPTED FOR TWO WEEKS.
     Route: 041
     Dates: start: 20070822, end: 20071001
  3. FARMORUBICIN [Concomitant]
     Route: 065
     Dates: start: 20070530, end: 20070801
  4. CYCLOPHOSPHAMIDE [Concomitant]
     Dates: start: 20070530, end: 20070801
  5. DECADRON [Concomitant]
     Route: 048
  6. DECADRON PHOSPHATE [Concomitant]
     Dates: start: 20070530, end: 20070801
  7. 1 CONCOMITANT DRUG [Concomitant]
     Dosage: DRUG NAME REPORTED AS: SINSERON (INDISETRON HYDROCHLORIDE).
     Route: 048

REACTIONS (1)
  - POLYMYOSITIS [None]
